FAERS Safety Report 6672628-X (Version None)
Quarter: 2010Q2

REPORT INFORMATION
  Report Type: 
  Country: None (occurrence: None)
  Receive Date: 20100406
  Receipt Date: 20100111
  Transmission Date: 20101027
  Serious: Yes (Death, Life-Threatening)
  Sender: FDA-Public Use
  Company Number: MC201000011

PATIENT
  Age: 83 Year
  Sex: Male
  Weight: 68.9 kg

DRUGS (13)
  1. ANGIOMAX [Suspect]
     Indication: PERCUTANEOUS CORONARY INTERVENTION
     Dosage: 10.1 ML, INTRAVENOUS; 24.5 ML, HR, INTRAVENOUS
     Route: 042
     Dates: start: 20091231, end: 20091231
  2. ANGIOMAX [Suspect]
     Indication: PERCUTANEOUS CORONARY INTERVENTION
     Dosage: 10.1 ML, INTRAVENOUS; 24.5 ML, HR, INTRAVENOUS
     Route: 042
     Dates: start: 20091231, end: 20091231
  3. OMNIPAQUE 350 [Suspect]
     Indication: PERCUTANEOUS CORONARY INTERVENTION
     Dosage: 200 ML, INTRAVENOUS
     Route: 042
  4. PERCOCET [Concomitant]
  5. FENTANYL CITRATE [Concomitant]
  6. PRAVASTATIN [Concomitant]
  7. LIPITOR [Concomitant]
  8. COREG [Concomitant]
  9. CYANOCOBALAMIN [Concomitant]
  10. ZESTRIL [Concomitant]
  11. NEXIUM [Concomitant]
  12. AMBIEN [Concomitant]
  13. LISINOPRIL [Concomitant]

REACTIONS (4)
  - ANAPHYLACTIC REACTION [None]
  - CARDIO-RESPIRATORY ARREST [None]
  - PRURITUS [None]
  - THROAT TIGHTNESS [None]
